FAERS Safety Report 8584146-2 (Version None)
Quarter: 2012Q3

REPORT INFORMATION
  Report Type: 
  Country: None (occurrence: None)
  Receive Date: 20120810
  Receipt Date: 20120802
  Transmission Date: 20120928
  Serious: Yes (Hospitalization, Disabling, Other)
  Sender: FDA-Public Use
  Company Number: US-009507513-2012SP023053

PATIENT

DRUGS (2)
  1. NUVARING [Suspect]
     Indication: HORMONE THERAPY
     Dosage: UNK
     Dates: start: 20000101, end: 20100101
  2. NUVARING [Suspect]
     Indication: CONTRACEPTION

REACTIONS (6)
  - IRRITABLE BOWEL SYNDROME [None]
  - DEPRESSION [None]
  - OVARIAN CYST [None]
  - PULMONARY EMBOLISM [None]
  - THROMBOSIS [None]
  - DEEP VEIN THROMBOSIS [None]
